FAERS Safety Report 12269964 (Version 1)
Quarter: 2016Q2

REPORT INFORMATION
  Report Type: Other
  Country: US (occurrence: US)
  Receive Date: 20160415
  Receipt Date: 20160415
  Transmission Date: 20160815
  Serious: Yes (Hospitalization)
  Sender: FDA-Public Use
  Company Number: US-JUBILANT GENERICS LIMITED-1050595

PATIENT
  Age: 76 Year
  Sex: Female

DRUGS (9)
  1. FOLIC ACID. [Concomitant]
     Active Substance: FOLIC ACID
  2. VANCOMYCIN HCL [Concomitant]
     Active Substance: VANCOMYCIN HYDROCHLORIDE
  3. AMITRIPTYLINE HYDROCHLORIDE. [Concomitant]
     Active Substance: AMITRIPTYLINE HYDROCHLORIDE
  4. SIMVASTATIN. [Concomitant]
     Active Substance: SIMVASTATIN
  5. LEVOFLOXACIN. [Suspect]
     Active Substance: LEVOFLOXACIN
  6. PIPERACILLIN/TAZOBACTAM [Concomitant]
     Active Substance: PIPERACILLIN SODIUM\TAZOBACTAM SODIUM
  7. POMALIDAMIDE UNKNOWN [Suspect]
     Active Substance: POMALIDOMIDE
  8. GLARGINE INSULIN [Concomitant]
     Active Substance: INSULIN GLARGINE
  9. FILGRASTIM [Concomitant]
     Active Substance: FILGRASTIM

REACTIONS (2)
  - Renal tubular necrosis [Recovering/Resolving]
  - Crystal nephropathy [Recovering/Resolving]

NARRATIVE: CASE EVENT DATE: 20160404
